FAERS Safety Report 24411753 (Version 1)
Quarter: 2024Q4

REPORT INFORMATION
  Report Type: Spontaneous
  Country: US (occurrence: None)
  Receive Date: 20241007
  Receipt Date: 20241007
  Transmission Date: 20250114
  Serious: Yes (unspecified)
  Sender: Public
  Company Number: None

PATIENT
  Age: 9 Year
  Sex: Female

DRUGS (3)
  1. PREDNISONE [Suspect]
     Active Substance: PREDNISONE
     Indication: Product dispensing error
     Dates: start: 20241006, end: 20241006
  2. Antiobiotic eye infection [Concomitant]
  3. Eye Ointment stye [Concomitant]

REACTIONS (3)
  - Product dispensing error [None]
  - Wrong product administered [None]
  - Accidental exposure to product by child [None]

NARRATIVE: CASE EVENT DATE: 20241006
